FAERS Safety Report 7959079-2 (Version None)
Quarter: 2011Q4

REPORT INFORMATION
  Report Type: 
  Country: None (occurrence: None)
  Receive Date: 20111206
  Receipt Date: 20111206
  Transmission Date: 20120403
  Serious: Yes (Life-Threatening, Hospitalization)
  Sender: FDA-Public Use
  Company Number: None

PATIENT
  Age: 34 Year
  Sex: Female
  Weight: 53.523 kg

DRUGS (1)
  1. IMIPRAMINE [Suspect]
     Indication: ANXIETY
     Dosage: 75 MG
     Route: 002
     Dates: start: 20110524, end: 20111130

REACTIONS (3)
  - SUICIDAL IDEATION [None]
  - WITHDRAWAL SYNDROME [None]
  - HOMICIDAL IDEATION [None]
